FAERS Safety Report 15396667 (Version 1)
Quarter: 2018Q3

REPORT INFORMATION
  Report Type: Spontaneous
  Country: US (occurrence: US)
  Receive Date: 20180912
  Receipt Date: 20180912
  Transmission Date: 20181010
  Serious: Yes (Other)
  Sender: FDA-Public Use
  Company Number: None

PATIENT
  Age: 70 Year
  Sex: Female
  Weight: 54.43 kg

DRUGS (18)
  1. PROAIR HFA [Concomitant]
     Active Substance: ALBUTEROL SULFATE
  2. PREMARIN [Concomitant]
     Active Substance: ESTROGENS, CONJUGATED
  3. ASPIRIN. [Concomitant]
     Active Substance: ASPIRIN
  4. MIRALAX [Concomitant]
     Active Substance: POLYETHYLENE GLYCOL 3350
  5. MUCINEX [Concomitant]
     Active Substance: GUAIFENESIN
  6. ANTIBIOTIC CREAM [Concomitant]
  7. VALSARTAN TABLETS, USP 160MG [Suspect]
     Active Substance: VALSARTAN
     Indication: HYPERTENSION
     Dosage: ?          QUANTITY:1 DF DOSAGE FORM;?
     Route: 048
     Dates: start: 201506, end: 201710
  8. SPIRIVA [Concomitant]
     Active Substance: TIOTROPIUM BROMIDE MONOHYDRATE
  9. WELLBUTRIN [Concomitant]
     Active Substance: BUPROPION HYDROCHLORIDE
  10. TRIMO?SAN [Concomitant]
  11. PESSARY DEVICE [Concomitant]
  12. XOPENEX [Concomitant]
     Active Substance: LEVALBUTEROL HYDROCHLORIDE
  13. ADVAIR HFA [Concomitant]
     Active Substance: FLUTICASONE PROPIONATE\SALMETEROL XINAFOATE
  14. XANAX [Concomitant]
     Active Substance: ALPRAZOLAM
  15. FLONASE [Concomitant]
     Active Substance: FLUTICASONE PROPIONATE
  16. PREDISONE [Concomitant]
     Active Substance: PREDNISONE
  17. LANACANE [Concomitant]
     Active Substance: BENZOCAINE
  18. CITRACAL + D [Concomitant]
     Active Substance: CALCIUM CITRATE\VITAMIN D

REACTIONS (5)
  - Skin exfoliation [None]
  - Dry skin [None]
  - Pruritus [None]
  - Acne [None]
  - Scratch [None]
